FAERS Safety Report 24827916 (Version 2)
Quarter: 2025Q1

REPORT INFORMATION
  Report Type: Spontaneous
  Country: US (occurrence: US)
  Receive Date: 20250109
  Receipt Date: 20250213
  Transmission Date: 20250408
  Serious: No
  Sender: IPSEN BIOPHARMACEUTICALS, INC.
  Company Number: US-IPSEN Group, Research and Development-2025-00276

PATIENT
  Sex: Male

DRUGS (2)
  1. IQIRVO [Suspect]
     Active Substance: ELAFIBRANOR
     Indication: Primary biliary cholangitis
     Route: 048
     Dates: start: 202410
  2. IQIRVO [Suspect]
     Active Substance: ELAFIBRANOR
     Indication: Autoimmune hepatitis

REACTIONS (3)
  - Weight increased [Unknown]
  - Constipation [Unknown]
  - Abdominal pain [Unknown]
